FAERS Safety Report 10514416 (Version 1)
Quarter: 2014Q4

REPORT INFORMATION
  Report Type: Spontaneous
  Country: DE (occurrence: DE)
  Receive Date: 20141013
  Receipt Date: 20141013
  Transmission Date: 20150528
  Serious: Yes (Congenital Anomaly, Other)
  Sender: FDA-Public Use
  Company Number: DE-TEVA-513657GER

PATIENT
  Age: 0 Year
  Sex: Male
  Weight: 3.79 kg

DRUGS (9)
  1. ZYPREXA [Suspect]
     Active Substance: OLANZAPINE
     Indication: ANXIETY DISORDER
     Dosage: 10 MILLIGRAM DAILY;
     Route: 064
     Dates: start: 20140124, end: 20140315
  2. SEROQUEL [Concomitant]
     Active Substance: QUETIAPINE FUMARATE
     Indication: ANXIETY DISORDER
     Dosage: 75 MILLIGRAM DAILY;
     Route: 064
     Dates: start: 20131220, end: 20131224
  3. CITALOPRAM [Concomitant]
     Active Substance: CITALOPRAM HYDROBROMIDE
     Indication: ANXIETY DISORDER
     Dosage: STARTED WITH 20 MG/D, FROM GW 30 TO 33.2: 30 MG/D
     Route: 064
     Dates: start: 20131220, end: 20140123
  4. PAROXETIN [Suspect]
     Active Substance: PAROXETINE HYDROCHLORIDE
     Indication: ANXIETY DISORDER
     Dosage: 20 MILLIGRAM DAILY; GW: 0-5 20 MG/D, THEN STOPPED, THERAPY STARTED AGAIN IN GW 12.5 UNTIL GW 23.6
     Route: 064
     Dates: start: 20130604, end: 20131118
  5. FOLIO [Concomitant]
     Active Substance: FOLIC ACID
     Indication: PROPHYLAXIS OF NEURAL TUBE DEFECT
     Dosage: .4 MILLIGRAM DAILY;
     Route: 064
     Dates: start: 20130703, end: 20140315
  6. RISPERDAL [Concomitant]
     Active Substance: RISPERIDONE
     Indication: ANXIETY DISORDER
     Dosage: 2 MILLIGRAM DAILY; GW 21.2 TO 28.3 AND GW 29.1 TO 33.2
     Route: 064
     Dates: start: 20131031, end: 20140123
  7. TREVILOR RETARD [Suspect]
     Active Substance: VENLAFAXINE HYDROCHLORIDE
     Indication: ANXIETY DISORDER
     Dosage: 450 MILLIGRAM DAILY; NOT KNOWN IF DOSE WAS SEPERATED
     Route: 064
     Dates: start: 20140124, end: 20140315
  8. DIAZEPAM. [Concomitant]
     Active Substance: DIAZEPAM
     Indication: ANXIETY DISORDER
     Dosage: 10 MILLIGRAM DAILY;
     Route: 064
     Dates: start: 20131122, end: 20131224
  9. AMITRIPTYLIN [Concomitant]
     Active Substance: AMITRIPTYLINE
     Indication: ANXIETY DISORDER
     Dosage: DOSE NOT EXACTLY KNOWN
     Route: 064
     Dates: start: 20131119, end: 20131220

REACTIONS (6)
  - Haemangioma congenital [Unknown]
  - Agitation neonatal [Recovered/Resolved]
  - Restlessness [Recovered/Resolved]
  - Oxygen saturation abnormal [Recovered/Resolved]
  - Drug withdrawal syndrome neonatal [Recovered/Resolved]
  - Foetal exposure during pregnancy [Unknown]
